FAERS Safety Report 20609226 (Version 1)
Quarter: 2022Q1

REPORT INFORMATION
  Report Type: Spontaneous
  Country: GB (occurrence: GB)
  Receive Date: 20220317
  Receipt Date: 20220317
  Transmission Date: 20220423
  Serious: Yes (Other)
  Sender: FDA-Public Use
  Company Number: GB-MHRA-MED-202203111422074250-NTP1M

PATIENT

DRUGS (1)
  1. PEMBROLIZUMAB [Suspect]
     Active Substance: PEMBROLIZUMAB
     Indication: Adverse drug reaction
     Dosage: 200MG 3 WEEKLY ; ;
     Dates: start: 20211210, end: 20220208

REACTIONS (1)
  - Skin toxicity [Recovering/Resolving]

NARRATIVE: CASE EVENT DATE: 20220224
